FAERS Safety Report 7372298-1 (Version None)
Quarter: 2011Q1

REPORT INFORMATION
  Report Type: 
  Country: None (occurrence: None)
  Receive Date: 20110324
  Receipt Date: 20110316
  Transmission Date: 20110831
  Serious: Yes (Hospitalization)
  Sender: FDA-Public Use
  Company Number: B0537682A

PATIENT
  Sex: Male

DRUGS (3)
  1. LENALIDOMIDE [Suspect]
     Indication: MULTIPLE MYELOMA
     Dosage: 10MG PER DAY
     Route: 048
     Dates: start: 20080617
  2. PREDNISONE [Suspect]
     Indication: MULTIPLE MYELOMA
     Dosage: 120MG PER DAY
     Route: 048
     Dates: start: 20080617
  3. MELPHALAN [Suspect]
     Indication: MULTIPLE MYELOMA
     Dosage: 10MG PER DAY
     Route: 048
     Dates: start: 20080617

REACTIONS (1)
  - PNEUMONIA [None]
